FAERS Safety Report 8790974 (Version 1)
Quarter: 2012Q4

REPORT INFORMATION
  Report Type: 
  Country: US (occurrence: None)
  Receive Date: 20120907
  Receipt Date: 20120907
  Transmission Date: 20130627
  Serious: Yes (Other)
  Sender: FDA-Public Use
  Company Number: 2012HGS-003811

PATIENT
  Age: 32 Year
  Sex: Female
  Weight: 95.26 kg

DRUGS (9)
  1. BENLYSTA [Suspect]
     Indication: SLE
     Dosage: 1 IN 28 D, Intravenous drip
     Route: 041
     Dates: start: 20120213
  2. BENLYSTA [Suspect]
     Indication: SLE
     Dates: start: 20120229
  3. BENLYSTA [Suspect]
     Indication: SLE
     Dates: start: 20120313
  4. BENLYSTA [Suspect]
     Indication: SLE
     Dates: start: 20120411
  5. BENLYSTA [Suspect]
     Indication: SLE
     Dates: start: 20120509
  6. BENLYSTA [Suspect]
     Indication: SLE
     Dates: start: 20120606
  7. PREDNISONE (PREDNISONE) (PREDNISONE) [Concomitant]
  8. CELLCEPT (MYCOPHENOLATE MOFETIL) (MYCOPHENOLATE MOFETIL) [Concomitant]
  9. SYNTHROID (LEVOTHYROXINE SODIUM) (LEVOTHYROXINE SODIUM) [Concomitant]

REACTIONS (5)
  - Systemic lupus erythematosus [None]
  - Productive cough [None]
  - Dyspnoea [None]
  - Cough [None]
  - Dyspnoea [None]
